FAERS Safety Report 7368399-4 (Version None)
Quarter: 2011Q1

REPORT INFORMATION
  Report Type: 
  Country: None (occurrence: None)
  Receive Date: 20110323
  Receipt Date: 20110308
  Transmission Date: 20110831
  Serious: Yes (Hospitalization)
  Sender: FDA-Public Use
  Company Number: US-JNJFOC-20110308235

PATIENT
  Sex: Female

DRUGS (4)
  1. REMICADE [Suspect]
     Dosage: TOTAL 10 DOSES
     Route: 042
  2. REMICADE [Suspect]
     Dosage: TOTAL 10 DOSES
     Route: 042
  3. REMICADE [Suspect]
     Indication: COLITIS ULCERATIVE
     Route: 042
  4. REMICADE [Suspect]
     Indication: COLITIS
     Route: 042

REACTIONS (2)
  - HOSPITALISATION [None]
  - COLOSTOMY CLOSURE [None]
